FAERS Safety Report 14623383 (Version 2)
Quarter: 2018Q1

REPORT INFORMATION
  Report Type: Spontaneous
  Country: US (occurrence: US)
  Receive Date: 20180312
  Receipt Date: 20180323
  Transmission Date: 20180509
  Serious: Yes (Death, Hospitalization)
  Sender: FDA-Public Use
  Company Number: US-JNJFOC-20180300035

PATIENT
  Age: 54 Year
  Sex: Male

DRUGS (2)
  1. XARELTO [Suspect]
     Active Substance: RIVAROXABAN
     Indication: DEEP VEIN THROMBOSIS
     Route: 048
     Dates: end: 20160511
  2. XARELTO [Suspect]
     Active Substance: RIVAROXABAN
     Indication: DEEP VEIN THROMBOSIS
     Route: 048
     Dates: start: 20150701, end: 20160127

REACTIONS (5)
  - Fall [Unknown]
  - Haemorrhagic stroke [Unknown]
  - Internal haemorrhage [Unknown]
  - Haemorrhage [Recovered/Resolved]
  - Ecchymosis [Unknown]

NARRATIVE: CASE EVENT DATE: 20160127
